FAERS Safety Report 4938764-0 (Version None)
Quarter: 2006Q1

REPORT INFORMATION
  Report Type: 
  Country: None (occurrence: None)
  Receive Date: 20060127
  Receipt Date: 20051101
  Transmission Date: 20060701
  Serious: Yes (Other)
  Sender: FDA-Public Use
  Company Number: 2005150919

PATIENT
  Sex: Female
  Weight: 63.5036 kg

DRUGS (15)
  1. LYRICA [Suspect]
     Indication: PAIN
     Dosage: 150 MG ORAL
     Route: 048
     Dates: start: 20050901
  2. RELPAX [Concomitant]
  3. CHLORZOXAZONE [Concomitant]
  4. HYDROCODONE BITARTRATE + ACETAMINOPHEN [Concomitant]
  5. WELLBUTRIN XL [Concomitant]
  6. FLUCONAZOLE [Concomitant]
  7. AYGESTIN [Concomitant]
  8. TOPAMAX [Concomitant]
  9. PREMARIN [Concomitant]
  10. CLEOCIN [Concomitant]
  11. METRONIDAZOLE [Concomitant]
  12. GYNAZOLE (BUTOCONAZOLE NITRATE) [Concomitant]
  13. ALPRAZOLAM [Concomitant]
  14. CREON [Concomitant]
  15. PANLOR SS (CAFFEINE, DIHYDROCODEINE BITARTRATE, PARACETAMOL) [Concomitant]

REACTIONS (1)
  - MOOD SWINGS [None]
